FAERS Safety Report 22936421 (Version 2)
Quarter: 2024Q3

REPORT INFORMATION
  Report Type: Spontaneous
  Country: US (occurrence: None)
  Receive Date: 20230912
  Receipt Date: 20240822
  Transmission Date: 20241017
  Serious: Yes (Other)
  Sender: ASTRAZENECA
  Company Number: 2023A205223

PATIENT
  Age: 49 Year
  Sex: Female

DRUGS (10)
  1. COVID-19 VACCINE NOS [Suspect]
     Active Substance: COVID-19 VACCINE
     Dosage: UNKNOWN
     Route: 030
  2. SYMBICORT [Suspect]
     Active Substance: BUDESONIDE\FORMOTEROL FUMARATE DIHYDRATE
     Dosage: UNKNOWN UNKNOWN
     Route: 055
  3. LANADELUMAB [Suspect]
     Active Substance: LANADELUMAB
     Indication: Urticaria
     Route: 058
     Dates: start: 202110
  4. LANADELUMAB [Suspect]
     Active Substance: LANADELUMAB
     Indication: Urticaria
     Route: 058
     Dates: start: 20211214
  5. LANADELUMAB [Suspect]
     Active Substance: LANADELUMAB
     Indication: Urticaria
     Route: 058
     Dates: start: 202202
  6. LANADELUMAB [Suspect]
     Active Substance: LANADELUMAB
     Indication: Urticaria
     Route: 058
     Dates: start: 20220209
  7. LANADELUMAB [Suspect]
     Active Substance: LANADELUMAB
     Indication: Urticaria
     Route: 058
     Dates: start: 20220210
  8. LANADELUMAB [Suspect]
     Active Substance: LANADELUMAB
     Indication: Urticaria
     Route: 058
     Dates: start: 202208
  9. LANADELUMAB [Suspect]
     Active Substance: LANADELUMAB
     Indication: Urticaria
     Route: 058
     Dates: start: 20220802
  10. XOLAIR [Concomitant]
     Active Substance: OMALIZUMAB

REACTIONS (1)
  - Anaphylactic reaction [Recovered/Resolved]

NARRATIVE: CASE EVENT DATE: 20230123
